FAERS Safety Report 23980089 (Version 1)
Quarter: 2024Q2

REPORT INFORMATION
  Report Type: Spontaneous
  Country: US (occurrence: US)
  Receive Date: 20240617
  Receipt Date: 20240617
  Transmission Date: 20240716
  Serious: No
  Sender: FDA-Public Use
  Company Number: US-Hangzhou Minsheng Binjiang Pharmaceutical Co., Ltd.-2158186

PATIENT
  Age: 64 Year
  Sex: Female
  Weight: 43.182 kg

DRUGS (12)
  1. ALENDRONATE SODIUM [Suspect]
     Active Substance: ALENDRONATE SODIUM
     Indication: Osteoporosis
  2. Women^s +50 multi vitamin [Concomitant]
  3. Diazepam 5mg as needed [Concomitant]
  4. Diphenoxylate and atropine as needed [Concomitant]
  5. ASPIRIN [Concomitant]
     Active Substance: ASPIRIN
  6. LISINOPRIL [Concomitant]
     Active Substance: LISINOPRIL
  7. Flazalone 20mg [Concomitant]
  8. EZETIMIBE [Concomitant]
     Active Substance: EZETIMIBE
  9. Atorastatin 80mg [Concomitant]
  10. Magnesium 250mg [Concomitant]
  11. Vitamin D3 400IU [Concomitant]
  12. Calcium 500mg twice daily [Concomitant]

REACTIONS (3)
  - Myalgia [Recovering/Resolving]
  - Moaning [Recovering/Resolving]
  - Bone pain [Recovering/Resolving]
